FAERS Safety Report 15711654 (Version 2)
Quarter: 2019Q3

REPORT INFORMATION
  Report Type: Spontaneous
  Country: DE (occurrence: DE)
  Receive Date: 20181212
  Receipt Date: 20190712
  Transmission Date: 20191004
  Serious: Yes (Hospitalization, Other)
  Sender: FDA-Public Use
  Company Number: DE-ALEXION-A201816043

PATIENT
  Age: 60 Year
  Sex: Female
  Weight: 45.8 kg

DRUGS (1)
  1. STRENSIQ [Suspect]
     Active Substance: ASFOTASE ALFA
     Indication: HYPOPHOSPHATASIA
     Dosage: 80 MG, TIW
     Route: 065
     Dates: start: 20160119

REACTIONS (1)
  - Hand deformity [Recovered/Resolved]

NARRATIVE: CASE EVENT DATE: 20181111
